FAERS Safety Report 8694090 (Version 2)
Quarter: 2013Q1

REPORT INFORMATION
  Report Type: Spontaneous
  Country: US (occurrence: None)
  Receive Date: 20120706
  Receipt Date: 20121218
  Transmission Date: 20140127
  Serious: Yes (Death)
  Sender: FDA-Public Use
  Company Number: 2012PROUSA01582

PATIENT
  Age: 71 Year
  Sex: Male

DRUGS (3)
  1. PROVENGE [Suspect]
     Indication: PROSTATE CANCER METASTATIC
     Dosage: 250 ML, SINGLE, INTRAVENOUS
     Route: 042
     Dates: start: 20120607, end: 20120607
  2. CASODEX (BICALUTAMIDE) [Concomitant]
  3. CALCIUM (CALCIUM) [Concomitant]

REACTIONS (4)
  - Death [None]
  - Cardiac arrest [None]
  - Aortic aneurysm [None]
  - Sudden death [None]
